FAERS Safety Report 4367542-9 (Version None)
Quarter: 2004Q2

REPORT INFORMATION
  Report Type: 
  Country: None (occurrence: None)
  Receive Date: 20040601
  Receipt Date: 20040520
  Transmission Date: 20050107
  Serious: Yes (Hospitalization)
  Sender: FDA-Public Use
  Company Number: JP-MERCK-0405USA02029

PATIENT
  Age: 50 Year
  Sex: Female

DRUGS (4)
  1. CEFOPERAZONE SODIUM AND SULBACTAM SODIUM [Concomitant]
     Route: 042
     Dates: start: 20040401, end: 20040513
  2. CLINDAMYCIN [Concomitant]
     Route: 042
     Dates: start: 20040401, end: 20040513
  3. PEPCID [Suspect]
     Route: 042
     Dates: start: 20040401, end: 20040513
  4. MEROPENEM [Concomitant]
     Route: 042
     Dates: start: 20040401, end: 20040513

REACTIONS (1)
  - INTERSTITIAL LUNG DISEASE [None]
